FAERS Safety Report 23415061 (Version 2)
Quarter: 2024Q1

REPORT INFORMATION
  Report Type: Spontaneous
  Country: US (occurrence: US)
  Receive Date: 20240118
  Receipt Date: 20240220
  Transmission Date: 20240409
  Serious: Yes (Other)
  Sender: FDA-Public Use
  Company Number: US-BRISTOL-MYERS SQUIBB COMPANY-2024-008508

PATIENT
  Age: 76 Year
  Sex: Male

DRUGS (1)
  1. ORENCIA [Suspect]
     Active Substance: ABATACEPT
     Indication: Product used for unknown indication
     Dosage: FREQUENCY: INJECT 1 SYRINGE WEEKLY
     Route: 058
     Dates: end: 20231214

REACTIONS (2)
  - Sepsis [Unknown]
  - Arthropathy [Unknown]

NARRATIVE: CASE EVENT DATE: 20231214
